FAERS Safety Report 23664167 (Version 1)
Quarter: 2024Q1

REPORT INFORMATION
  Report Type: Spontaneous
  Country: US (occurrence: None)
  Receive Date: 20240322
  Receipt Date: 20240322
  Transmission Date: 20240410
  Serious: Yes (Life-Threatening)
  Sender: FDA-Public Use
  Company Number: None

PATIENT
  Age: 81 Year
  Sex: Female

DRUGS (1)
  1. SKYRIZI [Suspect]
     Active Substance: RISANKIZUMAB-RZAA

REACTIONS (6)
  - Fatigue [None]
  - Nasopharyngitis [None]
  - Fall [None]
  - Rib fracture [None]
  - Lung neoplasm malignant [None]
  - Peripheral venous disease [None]
